FAERS Safety Report 8326489 (Version 3)
Quarter: 2013Q4

REPORT INFORMATION
  Report Type: Spontaneous
  Country: US (occurrence: US)
  Receive Date: 20120109
  Receipt Date: 20131122
  Transmission Date: 20140711
  Serious: Yes (Hospitalization)
  Sender: FDA-Public Use
  Company Number: US-BAYER-2012-000793

PATIENT
  Age: 27 Year
  Sex: Female
  Weight: 86.17 kg

DRUGS (8)
  1. YAZ [Suspect]
     Indication: ACNE
     Dosage: UNK
     Dates: start: 2001, end: 2007
  2. YASMIN [Suspect]
     Indication: ACNE
     Dosage: UNK
     Dates: start: 2001, end: 2007
  3. OXYCONTIN [Concomitant]
  4. LYRICA [Concomitant]
  5. LASIX [Concomitant]
  6. MS CONTIN [Concomitant]
     Indication: PAIN IN JAW
  7. ZOFRAN [Concomitant]
     Indication: NAUSEA
  8. ZOFRAN [Concomitant]
     Indication: VOMITING

REACTIONS (7)
  - Pancreatitis [None]
  - Gallbladder disorder [None]
  - Cholecystitis chronic [None]
  - Pain [None]
  - Anxiety [None]
  - Anhedonia [None]
  - Pancreatitis [None]
